FAERS Safety Report 7068710-8 (Version None)
Quarter: 2010Q4

REPORT INFORMATION
  Report Type: 
  Country: None (occurrence: None)
  Receive Date: 20101028
  Receipt Date: 20101021
  Transmission Date: 20110411
  Serious: Yes (Death)
  Sender: FDA-Public Use
  Company Number: US-PFIZER INC-2010134537

PATIENT
  Age: 64 Year
  Sex: Male

DRUGS (2)
  1. SUNITINIB MALATE [Suspect]
     Indication: LUNG NEOPLASM MALIGNANT
     Dosage: 50 MG, 1X/DAY WEEKS 1-2 OF 4-WEEK CYCLE
     Route: 048
     Dates: end: 20100928
  2. CILENGITIDE [Suspect]
     Indication: LUNG NEOPLASM MALIGNANT
     Dosage: 2000 MG, OVER 1 HR 2XWEEKLY, 72 HR APART OF WEEKS 3 AND 4
     Route: 042
     Dates: end: 20101004

REACTIONS (1)
  - PNEUMONITIS [None]
